FAERS Safety Report 17305324 (Version 4)
Quarter: 2020Q3

REPORT INFORMATION
  Report Type: Spontaneous
  Country: AU (occurrence: AU)
  Receive Date: 20200123
  Receipt Date: 20200818
  Transmission Date: 20201102
  Serious: Yes (Other)
  Sender: FDA-Public Use
  Company Number: AU-PFIZER INC-2019292191

PATIENT
  Age: 27 Year
  Sex: Female
  Weight: 118 kg

DRUGS (2)
  1. PENTASA [Concomitant]
     Active Substance: MESALAMINE
     Indication: COLITIS ULCERATIVE
     Dosage: 1 G, NOCTE
     Route: 054
     Dates: start: 20200120
  2. XELJANZ [Suspect]
     Active Substance: TOFACITINIB CITRATE
     Indication: COLITIS ULCERATIVE
     Dosage: 10 MG, 2X/DAY
     Route: 048
     Dates: start: 20190712

REACTIONS (6)
  - Stress [Recovering/Resolving]
  - C-reactive protein increased [Unknown]
  - Colitis ulcerative [Recovering/Resolving]
  - Blood iron decreased [Unknown]
  - Oxygen saturation decreased [Unknown]
  - Blood cholesterol decreased [Unknown]

NARRATIVE: CASE EVENT DATE: 20200115
